FAERS Safety Report 23540190 (Version 1)
Quarter: 2024Q1

REPORT INFORMATION
  Report Type: Spontaneous
  Country: US (occurrence: US)
  Receive Date: 20240219
  Receipt Date: 20240219
  Transmission Date: 20240410
  Serious: No
  Sender: FDA-Public Use
  Company Number: US-BAYER-2024A020980

PATIENT

DRUGS (20)
  1. CIPROFLOXACIN [Suspect]
     Active Substance: CIPROFLOXACIN
     Indication: Urinary tract infection
  2. IBRANCE [Suspect]
     Active Substance: PALBOCICLIB
     Dosage: 75 MG, QD
     Route: 048
  3. ACETAMINOPHEN [Concomitant]
     Active Substance: ACETAMINOPHEN
  4. ALBUTEROL SULFATE [Concomitant]
     Active Substance: ALBUTEROL SULFATE
  5. ANASTROZOLE [Concomitant]
     Active Substance: ANASTROZOLE
  6. ATIVAN [Concomitant]
     Active Substance: LORAZEPAM
  7. BUPRENORPHINE [Concomitant]
     Active Substance: BUPRENORPHINE
     Route: 062
  8. BUSPIRONE HCL [Concomitant]
     Active Substance: BUSPIRONE HYDROCHLORIDE
  9. CARDIZEM [Concomitant]
     Active Substance: DILTIAZEM HYDROCHLORIDE
  10. CARDURA [Concomitant]
     Active Substance: DOXAZOSIN MESYLATE
  11. CELECOXIB [Concomitant]
     Active Substance: CELECOXIB
  12. LANTUS SOLOSTAR [Concomitant]
     Active Substance: INSULIN GLARGINE
     Route: 058
  13. LISINOPRI EG [Concomitant]
  14. VITAMINS NOS [Concomitant]
     Active Substance: VITAMINS
  15. SODIUM CHLORIDE [Concomitant]
     Active Substance: SODIUM CHLORIDE
  16. NOVOLOG [Concomitant]
     Active Substance: INSULIN ASPART
     Route: 058
  17. OMEPRAZOLE [Concomitant]
     Active Substance: OMEPRAZOLE
  18. SYNTHROID [Concomitant]
     Active Substance: LEVOTHYROXINE SODIUM
  19. VITAMIN D2 [Concomitant]
     Active Substance: ERGOCALCIFEROL
  20. ZYRTEC [Concomitant]
     Active Substance: CETIRIZINE HYDROCHLORIDE

REACTIONS (1)
  - Drug ineffective [None]
